FAERS Safety Report 11158027 (Version 1)
Quarter: 2015Q2

REPORT INFORMATION
  Report Type: Spontaneous
  Country: US (occurrence: US)
  Receive Date: 20150603
  Receipt Date: 20150603
  Transmission Date: 20150821
  Serious: Yes (Other)
  Sender: FDA-Public Use
  Company Number: US-CIPLA LTD.-2015US04239

PATIENT

DRUGS (5)
  1. LOPINAVIR/RITONAVIR [Suspect]
     Active Substance: LOPINAVIR\RITONAVIR
     Indication: PROPHYLAXIS AGAINST HIV INFECTION
  2. LAMIVUDINE. [Suspect]
     Active Substance: LAMIVUDINE
     Indication: PROPHYLAXIS AGAINST HIV INFECTION
  3. NEVIRAPINE. [Suspect]
     Active Substance: NEVIRAPINE
     Indication: PROPHYLAXIS AGAINST HIV INFECTION
  4. ZIDOVUDINE. [Suspect]
     Active Substance: ZIDOVUDINE
     Indication: PROPHYLAXIS AGAINST HIV INFECTION
     Dosage: UNK
  5. STAVUDINE. [Suspect]
     Active Substance: STAVUDINE
     Indication: PROPHYLAXIS AGAINST HIV INFECTION

REACTIONS (1)
  - Adverse event [Unknown]
